FAERS Safety Report 6056439-4 (Version None)
Quarter: 2009Q1

REPORT INFORMATION
  Report Type: 
  Country: None (occurrence: None)
  Receive Date: 20090129
  Receipt Date: 20090126
  Transmission Date: 20090719
  Serious: Yes (Hospitalization)
  Sender: FDA-Public Use
  Company Number: DE-BAYER-200910614GPV

PATIENT
  Age: 82 Year
  Sex: Female

DRUGS (1)
  1. AVELOX [Suspect]
     Indication: BRONCHOPNEUMONIA
     Dosage: TOTAL DAILY DOSE: 400 MG
     Route: 048

REACTIONS (6)
  - APHASIA [None]
  - DEMENTIA [None]
  - DIARRHOEA [None]
  - DISORIENTATION [None]
  - FAECAL INCONTINENCE [None]
  - URINARY INCONTINENCE [None]
